FAERS Safety Report 15741188 (Version 1)
Quarter: 2018Q4

REPORT INFORMATION
  Report Type: Spontaneous
  Country: CN (occurrence: CN)
  Receive Date: 20181219
  Receipt Date: 20181219
  Transmission Date: 20190205
  Serious: Yes (Hospitalization, Other)
  Sender: FDA-Public Use
  Company Number: CN-GLAXOSMITHKLINE-CN2018GSK226223

PATIENT
  Age: 46 Year
  Sex: Male

DRUGS (3)
  1. ENTECAVIR. [Concomitant]
     Active Substance: ENTECAVIR
     Indication: HEPATITIS B
     Dosage: 0.5 MG, QN
  2. ADEFOVIR DIPIVOXIL. [Suspect]
     Active Substance: ADEFOVIR DIPIVOXIL
     Indication: CHRONIC HEPATITIS B
     Dosage: 10 MG, QD
  3. LAMIVUDINE. [Suspect]
     Active Substance: LAMIVUDINE
     Indication: HEPATITIS B

REACTIONS (13)
  - Osteomalacia [Recovered/Resolved]
  - Arthralgia [Recovered/Resolved]
  - Osteoporosis [Recovered/Resolved]
  - Bone pain [Recovered/Resolved]
  - Swelling [Recovered/Resolved]
  - Hepatic cirrhosis [Recovered/Resolved]
  - Blood alkaline phosphatase increased [Unknown]
  - Intervertebral disc degeneration [Recovered/Resolved]
  - Drug ineffective [Unknown]
  - Hypophosphataemia [Recovered/Resolved]
  - Pain in extremity [Recovered/Resolved]
  - Ascites [Recovered/Resolved]
  - Bone marrow oedema [Recovered/Resolved]
